FAERS Safety Report 15026601 (Version 1)
Quarter: 2018Q2

REPORT INFORMATION
  Report Type: Spontaneous
  Country: US (occurrence: US)
  Receive Date: 20180618
  Receipt Date: 20180618
  Transmission Date: 20180711
  Serious: No
  Sender: FDA-Public Use
  Company Number: US-009507513-1806USA001839

PATIENT
  Age: 20 Year
  Sex: Female

DRUGS (1)
  1. NUVARING [Suspect]
     Active Substance: ETHINYL ESTRADIOL\ETONOGESTREL
     Indication: VAGINAL HAEMORRHAGE
     Dosage: 3 WEEKS INSIDE THEN 1 WEEK BREAK
     Route: 067
     Dates: start: 20180601, end: 201806

REACTIONS (3)
  - Product shape issue [Unknown]
  - Product use in unapproved indication [Unknown]
  - Medical device site discomfort [Unknown]

NARRATIVE: CASE EVENT DATE: 20180603
